FAERS Safety Report 5278450-3 (Version None)
Quarter: 2007Q1

REPORT INFORMATION
  Report Type: 
  Country: None (occurrence: None)
  Receive Date: 20070322
  Receipt Date: 20070312
  Transmission Date: 20070707
  Serious: Yes (Other)
  Sender: FDA-Public Use
  Company Number: 2007S1000066

PATIENT
  Age: 50 Year
  Sex: Male

DRUGS (1)
  1. ACITRETIN [Suspect]
     Indication: DERMATITIS
     Dosage: PO
     Route: 048
     Dates: start: 19670101

REACTIONS (1)
  - CHOLANGITIS [None]
